FAERS Safety Report 5007054-2 (Version None)
Quarter: 2006Q1

REPORT INFORMATION
  Report Type: 
  Country: None (occurrence: None)
  Receive Date: 20060320
  Receipt Date: 20050824
  Transmission Date: 20060701
  Serious: Yes (Hospitalization)
  Sender: FDA-Public Use
  Company Number: 2005-08-1775

PATIENT
  Sex: Male

DRUGS (2)
  1. PEG-INTRON [Suspect]
     Dates: start: 20030101, end: 20030401
  2. RIBAVIRIN [Suspect]
     Dosage: ORAL
     Route: 048
     Dates: start: 20030101, end: 20030401

REACTIONS (9)
  - AMNESIA [None]
  - DEPRESSION [None]
  - FATIGUE [None]
  - INFECTION [None]
  - LOSS OF LIBIDO [None]
  - MUSCLE SPASMS [None]
  - TOOTH DISORDER [None]
  - VISUAL DISTURBANCE [None]
  - WHITE BLOOD CELL COUNT DECREASED [None]
